FAERS Safety Report 4919643-1 (Version None)
Quarter: 2006Q1

REPORT INFORMATION
  Report Type: 
  Country: None (occurrence: None)
  Receive Date: 20060216
  Receipt Date: 20060208
  Transmission Date: 20060701
  Serious: No
  Sender: FDA-Public Use
  Company Number: 33704

PATIENT
  Age: 1 Month
  Sex: Male

DRUGS (4)
  1. TROPICAMIDE [Suspect]
     Dosage: 6 GTTS OU OPHT
     Route: 047
     Dates: start: 20060103, end: 20060103
  2. ATROPINE [Suspect]
     Dosage: 2 GTTS OU OPHT
     Route: 047
     Dates: start: 20060103, end: 20060103
  3. PHENYLEPHRINE HCL 2.5% SOLUTION (MYDFRIN) [Suspect]
     Dosage: 1 GTT OU ONCE OPHT
     Route: 047
     Dates: start: 20060103, end: 20060103
  4. PROCAINE HCL [Concomitant]

REACTIONS (12)
  - ABDOMINAL DISTENSION [None]
  - ANAEMIA [None]
  - APNOEA [None]
  - BRADYCARDIA [None]
  - CONVULSION [None]
  - FLATULENCE [None]
  - GENE MUTATION [None]
  - NOSOCOMIAL INFECTION [None]
  - OVERDOSE [None]
  - OXYGEN SATURATION DECREASED [None]
  - STAPHYLOCOCCAL INFECTION [None]
  - TACHYCARDIA [None]
